FAERS Safety Report 23347014 (Version 1)
Quarter: 2023Q4

REPORT INFORMATION
  Report Type: Spontaneous
  Country: US (occurrence: US)
  Receive Date: 20231228
  Receipt Date: 20231228
  Transmission Date: 20240110
  Serious: Yes (Other)
  Sender: FDA-Public Use
  Company Number: US-MYLANLABS-2023M1137864

PATIENT
  Age: 58 Year
  Sex: Female

DRUGS (6)
  1. OXALIPLATIN [Interacting]
     Active Substance: OXALIPLATIN
     Indication: Adenocarcinoma pancreas
     Dosage: 85 MILLIGRAM/SQ. METER (INFUSION WAS INITIATED IN GLUCOSE [DEXTROSE] IN WATER AT A RATE OF 141ML/HR
     Route: 065
  2. IRINOTECAN [Interacting]
     Active Substance: IRINOTECAN
     Indication: Adenocarcinoma pancreas
     Dosage: 150 MILLIGRAM/SQ. METER (RECEIVED AN INFUSION AT A RATE OF 176 ML/HR OVER 90 MIN)
     Route: 065
  3. IRINOTECAN [Interacting]
     Active Substance: IRINOTECAN
     Dosage: 150 MILLIGRAM/SQ. METER (RECEIVED AN INFUSION AT A RATE OF 87.5 ML/HR OVER 180MIN)
     Route: 065
  4. DEXTROSE [Concomitant]
     Active Substance: DEXTROSE\DEXTROSE MONOHYDRATE
     Indication: Vehicle solution use
     Dosage: OXALIPLATIN INFUSION WAS INITIATED IN GLUCOSE [DEXTROSE] IN WATER AT A RATE OF 141 ML/HR OVER 2 HOUR
     Route: 065
  5. ATROPINE [Concomitant]
     Active Substance: ATROPINE\ATROPINE SULFATE
     Indication: Product used for unknown indication
     Dosage: 0.4 MILLIGRAM
     Route: 065
  6. FAMOTIDINE [Concomitant]
     Active Substance: FAMOTIDINE
     Indication: Product used for unknown indication
     Dosage: UNK
     Route: 065

REACTIONS (6)
  - Drug interaction [Recovered/Resolved]
  - Dysarthria [Recovered/Resolved]
  - Headache [Recovered/Resolved]
  - Dizziness [Recovered/Resolved]
  - Dyspnoea [Recovered/Resolved]
  - Arrhythmia [Recovered/Resolved]
